FAERS Safety Report 8837501 (Version 1)
Quarter: 2012Q4

REPORT INFORMATION
  Report Type: 
  Country: US (occurrence: US)
  Receive Date: 20121012
  Receipt Date: 20121012
  Transmission Date: 20130627
  Serious: Yes (Other)
  Sender: FDA-Public Use
  Company Number: US-MYLANLABS-2012S1020674

PATIENT
  Age: 65 Year
  Sex: Female
  Weight: 67.13 kg

DRUGS (1)
  1. OMEPRAZOLE DELAYED-RELEASE CAPSULES, USP [Suspect]
     Indication: GASTROOESOPHAGEAL REFLUX DISEASE
     Route: 048
     Dates: start: 20120928, end: 20120928

REACTIONS (5)
  - Urticaria [Recovering/Resolving]
  - Rash generalised [Recovering/Resolving]
  - Pruritus generalised [Recovering/Resolving]
  - Erythema [Recovered/Resolved]
  - Chills [Recovered/Resolved]
